FAERS Safety Report 6321773-7 (Version None)
Quarter: 2009Q3

REPORT INFORMATION
  Report Type: 
  Country: None (occurrence: None)
  Receive Date: 20090821
  Receipt Date: 20090821
  Transmission Date: 20100115
  Serious: Yes (Life-Threatening, Hospitalization)
  Sender: FDA-Public Use
  Company Number: None

PATIENT
  Sex: Female
  Weight: 54.4316 kg

DRUGS (1)
  1. KAPIDEX [Suspect]
     Indication: GASTROOESOPHAGEAL REFLUX DISEASE
     Dosage: 60 QDAY PO
     Route: 048
     Dates: start: 20090619, end: 20090625

REACTIONS (4)
  - AMNESIA [None]
  - COORDINATION ABNORMAL [None]
  - DYSPNOEA [None]
  - HYPOXIA [None]
